FAERS Safety Report 6710659-1 (Version None)
Quarter: 2010Q2

REPORT INFORMATION
  Report Type: 
  Country: None (occurrence: None)
  Receive Date: 20100504
  Receipt Date: 20100504
  Transmission Date: 20101027
  Serious: Yes (Disabling, Other)
  Sender: FDA-Public Use
  Company Number: None

PATIENT
  Age: 29 Year
  Sex: Male
  Weight: 78.9259 kg

DRUGS (2)
  1. CIPRO [Suspect]
     Indication: SEXUALLY TRANSMITTED DISEASE
     Dosage: 1 500 MG TABLET TWICE DAILY PO
     Route: 048
     Dates: start: 20100429, end: 20100430
  2. CIPRO [Suspect]
     Indication: URINARY TRACT INFECTION
     Dosage: 1 500 MG TABLET TWICE DAILY PO
     Route: 048
     Dates: start: 20100429, end: 20100430

REACTIONS (14)
  - ABDOMINAL PAIN UPPER [None]
  - ANXIETY [None]
  - DIARRHOEA [None]
  - DYSPNOEA [None]
  - FAECES DISCOLOURED [None]
  - FLIGHT OF IDEAS [None]
  - HYPOAESTHESIA [None]
  - MUSCULAR WEAKNESS [None]
  - PARAESTHESIA [None]
  - POOR QUALITY SLEEP [None]
  - TACHYPHRENIA [None]
  - TENDON DISORDER [None]
  - TENDON PAIN [None]
  - WEIGHT BEARING DIFFICULTY [None]
